FAERS Safety Report 7616985-6 (Version None)
Quarter: 2011Q3

REPORT INFORMATION
  Report Type: 
  Country: None (occurrence: None)
  Receive Date: 20110718
  Receipt Date: 20110707
  Transmission Date: 20111222
  Serious: No
  Sender: FDA-Public Use
  Company Number: US-BIOGENIDEC-2011BI025496

PATIENT
  Age: 56 Year
  Sex: Female

DRUGS (3)
  1. AVONEX [Suspect]
     Indication: MULTIPLE SCLEROSIS
     Route: 030
     Dates: start: 20060617
  2. ULTRACET [Concomitant]
     Indication: PAIN
  3. AVONEX [Suspect]
     Route: 030
     Dates: start: 20050601, end: 20060601

REACTIONS (6)
  - FALL [None]
  - MULTIPLE SCLEROSIS RELAPSE [None]
  - DRUG INEFFECTIVE [None]
  - ASTHENIA [None]
  - BACK INJURY [None]
  - MUSCULAR WEAKNESS [None]
